FAERS Safety Report 16896933 (Version 1)
Quarter: 2019Q4

REPORT INFORMATION
  Report Type: Spontaneous
  Country: US (occurrence: US)
  Receive Date: 20191009
  Receipt Date: 20191009
  Transmission Date: 20200122
  Serious: No
  Sender: FDA-Public Use
  Company Number: US-LUPIN PHARMACEUTICALS INC.-2019-05172

PATIENT
  Age: 34 Year
  Sex: Female
  Weight: 671.2 kg

DRUGS (2)
  1. VIOLET [Concomitant]
     Indication: PRODUCT USED FOR UNKNOWN INDICATION
     Dosage: UNK
     Route: 065
  2. SOLOSEC [Suspect]
     Active Substance: SECNIDAZOLE
     Indication: BACTERIAL VAGINOSIS
     Dosage: UNK UNK, SINGLE
     Route: 048
     Dates: start: 20190807, end: 20190807

REACTIONS (3)
  - Nausea [Not Recovered/Not Resolved]
  - Incorrect product administration duration [Unknown]
  - Product taste abnormal [Not Recovered/Not Resolved]

NARRATIVE: CASE EVENT DATE: 20190807
